FAERS Safety Report 23861859 (Version 1)
Quarter: 2024Q2

REPORT INFORMATION
  Report Type: Report from Study
  Country: BR (occurrence: BR)
  Receive Date: 20240516
  Receipt Date: 20240516
  Transmission Date: 20240715
  Serious: Yes (Other)
  Sender: FDA-Public Use
  Company Number: BR-JNJFOC-20240533676

PATIENT
  Age: 43 Year
  Sex: Female
  Weight: 70 kg

DRUGS (1)
  1. INFLIXIMAB [Suspect]
     Active Substance: INFLIXIMAB
     Indication: Crohn^s disease
     Route: 041
     Dates: start: 20230208, end: 202310

REACTIONS (12)
  - Accident at work [Unknown]
  - Joint dislocation [Unknown]
  - Arthropathy [Unknown]
  - Back disorder [Unknown]
  - Spinal disorder [Unknown]
  - Neck injury [Unknown]
  - Ligament rupture [Unknown]
  - Hypokinesia [Unknown]
  - Pain in extremity [Unknown]
  - Depression [Unknown]
  - Dengue fever [Unknown]
  - Musculoskeletal disorder [Unknown]

NARRATIVE: CASE EVENT DATE: 20230601
